FAERS Safety Report 17544777 (Version 1)
Quarter: 2020Q1

REPORT INFORMATION
  Report Type: Spontaneous
  Country: FR (occurrence: FR)
  Receive Date: 20200316
  Receipt Date: 20200316
  Transmission Date: 20200409
  Serious: Yes (Other)
  Sender: FDA-Public Use
  Company Number: FR-ACCORD-175607

PATIENT
  Age: 72 Year
  Sex: Female
  Weight: 60 kg

DRUGS (10)
  1. IMUREL [Suspect]
     Active Substance: AZATHIOPRINE SODIUM
     Indication: RENAL TRANSPLANT
     Route: 048
  2. IMOVANE [Suspect]
     Active Substance: ZOPICLONE
     Indication: SLEEP DISORDER
     Dosage: STRENGTH 7.5 MG, SCORED FILM-COATED TABLET
     Route: 048
     Dates: start: 2010
  3. ATORVASTATIN/ATORVASTATIN CALCIUM [Suspect]
     Active Substance: ATORVASTATIN CALCIUM
     Indication: DYSLIPIDAEMIA
     Route: 048
  4. LEVOTHYROX [Concomitant]
     Active Substance: LEVOTHYROXINE
  5. COSIDIME [Suspect]
     Active Substance: DORZOLAMIDE HYDROCHLORIDE\TIMOLOL MALEATE
     Indication: GLAUCOMA
     Route: 047
  6. LASILIX [Suspect]
     Active Substance: FUROSEMIDE
     Indication: PRODUCT USED FOR UNKNOWN INDICATION
     Route: 048
  7. NEORAL [Suspect]
     Active Substance: CYCLOSPORINE
     Indication: RENAL TRANSPLANT
     Dosage: STRENGTH 50 MG
     Route: 048
  8. METFORMIN [Concomitant]
     Active Substance: METFORMIN HYDROCHLORIDE
  9. UVEDOSE [Concomitant]
     Active Substance: CHOLECALCIFEROL
  10. PREVISCAN [Concomitant]

REACTIONS (4)
  - Disturbance in attention [Not Recovered/Not Resolved]
  - Malaise [Not Recovered/Not Resolved]
  - Balance disorder [Not Recovered/Not Resolved]
  - Fall [Unknown]

NARRATIVE: CASE EVENT DATE: 2018
